FAERS Safety Report 7172705-3 (Version None)
Quarter: 2010Q4

REPORT INFORMATION
  Report Type: 
  Country: None (occurrence: None)
  Receive Date: 20101217
  Receipt Date: 20100224
  Transmission Date: 20110411
  Serious: No
  Sender: FDA-Public Use
  Company Number: US-AMGEN-KDL391172

PATIENT

DRUGS (5)
  1. ENBREL [Suspect]
     Indication: RHEUMATOID ARTHRITIS
     Dosage: 50 MG, QWK
     Route: 058
     Dates: start: 20091204
  2. HYDROXYCHLOROQUINE SULFATE [Concomitant]
     Dosage: 200 MG, QD
  3. LEVOTHYROXINE SODIUM [Concomitant]
  4. OMEPRAZOLE [Concomitant]
  5. FISH OIL [Concomitant]

REACTIONS (4)
  - ABDOMINAL DISCOMFORT [None]
  - ARTHRALGIA [None]
  - DYSPEPSIA [None]
  - OESOPHAGITIS [None]
